FAERS Safety Report 7215324-2 (Version None)
Quarter: 2011Q1

REPORT INFORMATION
  Report Type: 
  Country: None (occurrence: None)
  Receive Date: 20110104
  Receipt Date: 20110104
  Transmission Date: 20110831
  Serious: No
  Sender: FDA-Public Use
  Company Number: None

PATIENT
  Age: 4 Year
  Sex: Male
  Weight: 14.9687 kg

DRUGS (2)
  1. SINGULAIR [Suspect]
     Indication: ASTHMA
     Dosage: 5MG 1 ORAL
     Route: 048
     Dates: start: 20101028, end: 20101217
  2. SINGULAIR [Suspect]
     Indication: RHINITIS SEASONAL
     Dosage: 5MG 1 ORAL
     Route: 048
     Dates: start: 20101028, end: 20101217

REACTIONS (3)
  - INSOMNIA [None]
  - HOSTILITY [None]
  - AGGRESSION [None]
